FAERS Safety Report 18342885 (Version 1)
Quarter: 2020Q4

REPORT INFORMATION
  Report Type: Spontaneous
  Country: US (occurrence: US)
  Receive Date: 20201002
  Receipt Date: 20201002
  Transmission Date: 20210113
  Serious: Yes (Other)
  Sender: FDA-Public Use
  Company Number: None

PATIENT
  Sex: Female
  Weight: 93.6 kg

DRUGS (1)
  1. PHENTERMINE. [Suspect]
     Active Substance: PHENTERMINE
     Indication: WEIGHT DECREASED
     Dosage: ?

REACTIONS (9)
  - Dizziness [None]
  - Constipation [None]
  - Dry mouth [None]
  - Anxiety [None]
  - Dyskinesia [None]
  - Nervousness [None]
  - Insomnia [None]
  - Hallucination [None]
  - Abnormal behaviour [None]
